FAERS Safety Report 6004973-5 (Version None)
Quarter: 2008Q4

REPORT INFORMATION
  Report Type: 
  Country: None (occurrence: None)
  Receive Date: 20081216
  Receipt Date: 20081205
  Transmission Date: 20090506
  Serious: Yes (Other)
  Sender: FDA-Public Use
  Company Number: PHHY2008GB31244

PATIENT
  Age: 67 Year
  Sex: Male

DRUGS (1)
  1. LAMISIL [Suspect]
     Indication: NAIL INFECTION
     Dosage: 250 MG/DAY
     Route: 048
     Dates: start: 20081111

REACTIONS (2)
  - INFECTION SUSCEPTIBILITY INCREASED [None]
  - PANCYTOPENIA [None]
